FAERS Safety Report 6683020-6 (Version None)
Quarter: 2010Q2

REPORT INFORMATION
  Report Type: 
  Country: None (occurrence: None)
  Receive Date: 20100415
  Receipt Date: 20100409
  Transmission Date: 20101027
  Serious: Yes (Hospitalization)
  Sender: FDA-Public Use
  Company Number: US-ASTRAZENECA-2010SE15701

PATIENT
  Age: 57 Year
  Sex: Female
  Weight: 99.8 kg

DRUGS (21)
  1. QUETIAPINE FUMARATE [Suspect]
     Indication: SCHIZOAFFECTIVE DISORDER
     Dosage: MULTIPLE DOSES AND TIMES
     Route: 048
     Dates: end: 20100301
  2. QUETIAPINE FUMARATE [Suspect]
     Route: 048
     Dates: start: 20100301
  3. DEPAKOTE [Suspect]
     Indication: SCHIZOAFFECTIVE DISORDER
     Route: 048
     Dates: start: 20020101, end: 20100301
  4. DEPAKOTE [Suspect]
     Dosage: 500 MG X 2 QHS
     Route: 048
     Dates: start: 20020101, end: 20100301
  5. DEPAKOTE [Suspect]
     Route: 048
     Dates: start: 20100301
  6. OMEPRAZOLE [Concomitant]
  7. ERGOCALCIFEROL [Concomitant]
     Indication: SUPPLEMENTATION THERAPY
     Dosage: 1000 UNITS 2 IN ONE DAY
  8. VITAMIN E [Concomitant]
     Indication: MEDICAL DIET
  9. TRAMADOL HCL [Concomitant]
     Indication: PAIN IN EXTREMITY
  10. THERAPEUTIC [Concomitant]
  11. LEVOTHYROXINE SODIUM [Concomitant]
     Route: 048
  12. SIMVASTATIN [Concomitant]
     Route: 048
  13. FISH OIL [Concomitant]
  14. FUROSEMIDE [Concomitant]
  15. HALOPERIDOL [Concomitant]
     Indication: SCHIZOAFFECTIVE DISORDER
  16. METAMUCIL-2 [Concomitant]
  17. MIRTAZAPINE [Concomitant]
     Indication: SCHIZOAFFECTIVE DISORDER
  18. CLONAZEPAM [Concomitant]
     Indication: SCHIZOAFFECTIVE DISORDER
  19. LORAZEPAM [Concomitant]
     Indication: SCHIZOAFFECTIVE DISORDER
  20. MAGNESIUM HYDROXIDE TAB [Concomitant]
  21. DOCUSATE SODIUM [Concomitant]

REACTIONS (10)
  - ASTHENIA [None]
  - CELLULITIS [None]
  - GLUCOSE TOLERANCE IMPAIRED [None]
  - LISTLESS [None]
  - OEDEMA PERIPHERAL [None]
  - PULMONARY THROMBOSIS [None]
  - SEDATION [None]
  - THROMBOSIS [None]
  - VITAMIN D DECREASED [None]
  - WEIGHT DECREASED [None]
